FAERS Safety Report 18996154 (Version 2)
Quarter: 2021Q1

REPORT INFORMATION
  Report Type: Spontaneous
  Country: US (occurrence: US)
  Receive Date: 20210311
  Receipt Date: 20210323
  Transmission Date: 20210420
  Serious: No
  Sender: FDA-Public Use
  Company Number: US-SA-2021SA081442

PATIENT
  Age: 82 Year
  Sex: Male

DRUGS (2)
  1. DUPIXENT [Suspect]
     Active Substance: DUPILUMAB
     Indication: ANAEMIA
     Dosage: 600 MG, 1X
     Route: 058
     Dates: start: 20210211, end: 20210211
  2. DUPIXENT [Suspect]
     Active Substance: DUPILUMAB
     Indication: DERMATITIS ATOPIC

REACTIONS (12)
  - Adverse drug reaction [Not Recovered/Not Resolved]
  - Myalgia [Recovered/Resolved]
  - Dyspnoea [Recovering/Resolving]
  - Erythema [Recovered/Resolved]
  - Vision blurred [Recovered/Resolved]
  - Muscle tightness [Recovering/Resolving]
  - Product use in unapproved indication [Unknown]
  - Dizziness [Recovered/Resolved]
  - Condition aggravated [Recovering/Resolving]
  - Condition aggravated [Recovered/Resolved]
  - Arthralgia [Recovered/Resolved]
  - Rash [Recovered/Resolved]

NARRATIVE: CASE EVENT DATE: 20210210
